FAERS Safety Report 9316132 (Version 3)
Quarter: 2015Q4

REPORT INFORMATION
  Report Type: Report from Study
  Country: US (occurrence: US)
  Receive Date: 20130530
  Receipt Date: 20151007
  Transmission Date: 20160305
  Serious: Yes (Death)
  Sender: FDA-Public Use
  Company Number: US-ROCHE-1230255

PATIENT
  Age: 31 Year
  Sex: Male
  Weight: 107.6 kg

DRUGS (16)
  1. LUCENTIS [Suspect]
     Active Substance: RANIBIZUMAB
     Indication: DIABETIC RETINAL OEDEMA
     Route: 050
  2. BETADINE [Concomitant]
     Active Substance: POVIDONE-IODINE
     Route: 065
  3. NEURONTIN [Concomitant]
     Active Substance: GABAPENTIN
     Dosage: X1 MONTH
     Route: 048
  4. LUCENTIS [Suspect]
     Active Substance: RANIBIZUMAB
     Indication: DIABETIC RETINOPATHY
     Route: 050
  5. LISINOPRIL. [Concomitant]
     Active Substance: LISINOPRIL
     Dosage: X 1 MONTH
     Route: 048
  6. SIMVASTATIN. [Concomitant]
     Active Substance: SIMVASTATIN
     Dosage: AT NIGHT
     Route: 048
  7. LIDOCAINE. [Concomitant]
     Active Substance: LIDOCAINE
     Route: 065
  8. CYMBALTA [Concomitant]
     Active Substance: DULOXETINE HYDROCHLORIDE
     Route: 048
     Dates: start: 20120730
  9. CYMBALTA [Concomitant]
     Active Substance: DULOXETINE HYDROCHLORIDE
     Dosage: 1 MONTH
     Route: 048
  10. ASPIR (UNK INGREDIENTS) [Concomitant]
     Route: 048
  11. LISINOPRIL. [Concomitant]
     Active Substance: LISINOPRIL
     Dosage: X 1 MONTH
     Route: 048
  12. LISINOPRIL. [Concomitant]
     Active Substance: LISINOPRIL
     Dosage: 1 MONTH
     Route: 048
     Dates: start: 20120730
  13. MUPIROCIN. [Concomitant]
     Active Substance: MUPIROCIN
     Dosage: TO AFFECTED AREA X10 DAYS
     Route: 061
  14. GLIMEPIRIDE. [Concomitant]
     Active Substance: GLIMEPIRIDE
     Route: 048
  15. METFORMIN [Concomitant]
     Active Substance: METFORMIN HYDROCHLORIDE
     Route: 048
  16. NEURONTIN [Concomitant]
     Active Substance: GABAPENTIN
     Dosage: 1 MONTH
     Route: 048

REACTIONS (7)
  - Photopsia [Unknown]
  - Microalbuminuria [Unknown]
  - Death [Fatal]
  - Hypoaesthesia [Unknown]
  - Eye oedema [Unknown]
  - Visual acuity reduced [Unknown]
  - Overdose [Unknown]

NARRATIVE: CASE EVENT DATE: 20120730
